FAERS Safety Report 14707798 (Version 1)
Quarter: 2018Q1

REPORT INFORMATION
  Report Type: Spontaneous
  Country: US (occurrence: US)
  Receive Date: 20180329
  Receipt Date: 20180329
  Transmission Date: 20180509
  Serious: No
  Sender: FDA-Public Use
  Company Number: None

PATIENT
  Age: 64 Year
  Sex: Male

DRUGS (1)
  1. HYDROMORPHONE [Suspect]
     Active Substance: HYDROMORPHONE
     Indication: SURGERY
     Route: 042
     Dates: start: 20170516, end: 20170516

REACTIONS (2)
  - Somnolence [None]
  - Respiratory depression [None]

NARRATIVE: CASE EVENT DATE: 20170516
